FAERS Safety Report 19509873 (Version 1)
Quarter: 2021Q3

REPORT INFORMATION
  Report Type: Spontaneous
  Country: US (occurrence: US)
  Receive Date: 20210709
  Receipt Date: 20210709
  Transmission Date: 20211014
  Serious: No
  Sender: FDA-Public Use
  Company Number: US-CURIUM-2021000421

PATIENT
  Age: 45 Year
  Sex: Female

DRUGS (2)
  1. CARDIOLITE [Concomitant]
     Active Substance: TECHNETIUM TC-99M SESTAMIBI
     Dosage: 2 DOSES ADMINISTERED 7 DAYS APART
     Route: 065
     Dates: start: 200411, end: 200411
  2. ULTRA?TECHNEKOW DTE [Suspect]
     Active Substance: TECHNETIUM TC-99M SODIUM PERTECHNETATE
     Dosage: 2 DOSES ADMINISTERED 7 DAYS APART
     Route: 065
     Dates: start: 200411, end: 200411

REACTIONS (3)
  - Contusion [Not Recovered/Not Resolved]
  - Vaginal haemorrhage [Unknown]
  - Ill-defined disorder [Not Recovered/Not Resolved]

NARRATIVE: CASE EVENT DATE: 2004
